FAERS Safety Report 25448681 (Version 1)
Quarter: 2025Q2

REPORT INFORMATION
  Report Type: Spontaneous
  Country: FR (occurrence: FR)
  Receive Date: 20250618
  Receipt Date: 20250618
  Transmission Date: 20250717
  Serious: Yes (Other)
  Sender: ACCORD
  Company Number: None

PATIENT
  Age: 72 Year
  Sex: Female

DRUGS (7)
  1. CLOZAPINE [Suspect]
     Active Substance: CLOZAPINE
     Indication: Schizoaffective disorder
     Dates: start: 2021
  2. CARBAMAZEPINE [Suspect]
     Active Substance: CARBAMAZEPINE
     Indication: Schizoaffective disorder
     Dates: start: 2020
  3. TRIMEPRAZINE [Suspect]
     Active Substance: TRIMEPRAZINE
     Indication: Schizoaffective disorder
     Dosage: STRENGTH: 5 MG
     Dates: start: 2015
  4. VALIUM [Concomitant]
     Active Substance: DIAZEPAM
  5. LEVOTHYROXINE SODIUM [Concomitant]
     Active Substance: LEVOTHYROXINE SODIUM
     Indication: Autoimmune thyroiditis
  6. IRBESARTAN [Concomitant]
     Active Substance: IRBESARTAN
     Indication: Hypertension
  7. ATROPINE [Concomitant]
     Active Substance: ATROPINE
     Dosage: 1 DROP IN THE MORNING

REACTIONS (1)
  - Circulating anticoagulant positive [Not Recovered/Not Resolved]

NARRATIVE: CASE EVENT DATE: 20241101
